FAERS Safety Report 5382147-9 (Version None)
Quarter: 2007Q3

REPORT INFORMATION
  Report Type: 
  Country: None (occurrence: None)
  Receive Date: 20070705
  Receipt Date: 20070619
  Transmission Date: 20080115
  Serious: Yes (Other)
  Sender: FDA-Public Use
  Company Number: 430016M07DEU

PATIENT

DRUGS (1)
  1. MITOXANTRONE HCL [Suspect]
     Dosage: 23 MG, 3 CYCLE, IV (NOT OTHERWISE SPECIFIED)
     Route: 042
     Dates: start: 20060101

REACTIONS (3)
  - EJECTION FRACTION DECREASED [None]
  - ENDOCARDIAL FIBROSIS [None]
  - VENTRICULAR HYPOKINESIA [None]
